FAERS Safety Report 19154176 (Version 4)
Quarter: 2021Q2

REPORT INFORMATION
  Report Type: Report from Study
  Country: US (occurrence: US)
  Receive Date: 20210419
  Receipt Date: 20210619
  Transmission Date: 20210717
  Serious: Yes (Other)
  Sender: FDA-Public Use
  Company Number: US-UCBSA-2021013712

PATIENT
  Age: 50 Year
  Sex: Female

DRUGS (1)
  1. CERTOLIZUMAB PEGOL [Suspect]
     Active Substance: CERTOLIZUMAB PEGOL
     Indication: PSORIASIS
     Dosage: 400 MILLIGRAM, EV 2 WEEKS(QOW)
     Dates: start: 20210224

REACTIONS (4)
  - Vaccination complication [Recovering/Resolving]
  - Stress [Not Recovered/Not Resolved]
  - Psoriasis [Recovering/Resolving]
  - COVID-19 immunisation [Unknown]

NARRATIVE: CASE EVENT DATE: 20210401
